FAERS Safety Report 9281687 (Version 1)
Quarter: 2013Q2

REPORT INFORMATION
  Report Type: Spontaneous
  Country: CA (occurrence: CA)
  Receive Date: 20130509
  Receipt Date: 20130509
  Transmission Date: 20140414
  Serious: Yes (Other)
  Sender: FDA-Public Use
  Company Number: CA-AMGEN-CANSP2012077862

PATIENT
  Age: 77 Year
  Sex: Female
  Weight: 52.27 kg

DRUGS (2)
  1. PROLIA [Suspect]
     Indication: OSTEOPOROSIS POSTMENOPAUSAL
     Dosage: UNK
  2. PROLIA [Suspect]

REACTIONS (9)
  - Osteonecrosis of jaw [Not Recovered/Not Resolved]
  - Hyperaesthesia [Unknown]
  - Device issue [Unknown]
  - Device expulsion [Not Recovered/Not Resolved]
  - Skin discomfort [Unknown]
  - Gingival disorder [Unknown]
  - Swelling face [Unknown]
  - Erythema [Unknown]
  - Cellulitis [Not Recovered/Not Resolved]
